FAERS Safety Report 6964940-1 (Version None)
Quarter: 2010Q3

REPORT INFORMATION
  Report Type: 
  Country: None (occurrence: None)
  Receive Date: 20100903
  Receipt Date: 20100823
  Transmission Date: 20110219
  Serious: Yes (Hospitalization, Other)
  Sender: FDA-Public Use
  Company Number: ES-ELI_LILLY_AND_COMPANY-ES201008006933

PATIENT
  Sex: Male
  Weight: 60 kg

DRUGS (8)
  1. FORTEO [Suspect]
     Indication: OSTEOPOROSIS
     Dosage: 20 UG, DAILY (1/D)
     Route: 058
     Dates: start: 20100301, end: 20100801
  2. SEGURIL [Concomitant]
     Indication: DIURETIC THERAPY
     Dosage: 80 MG, DAILY (1/D)
     Route: 048
  3. SPIRIVA [Concomitant]
     Indication: RESPIRATORY DISORDER
     Dosage: UNK, 2 PUFFS DAILY
     Route: 048
  4. ACETAMINOPHEN [Concomitant]
     Indication: ANALGESIC THERAPY
     Dosage: 1 G, EVERY 8 HRS
     Route: 048
  5. ALDACTONE [Concomitant]
     Dosage: 25 MG, DAILY (1/D)
     Route: 065
  6. ENALAPRIL [Concomitant]
     Dosage: 10 MG, DAILY (1/D)
     Route: 048
  7. BOI K [Concomitant]
     Dosage: 3 D/F, DAILY (1/D)
     Route: 048
  8. SINVASTATINA [Concomitant]
     Dosage: 20 MG, DAILY (1/D)
     Route: 048

REACTIONS (5)
  - CARDIAC FAILURE [None]
  - CARDIAC MURMUR [None]
  - MITRAL VALVE INCOMPETENCE [None]
  - PLEURAL EFFUSION [None]
  - TACHYCARDIA [None]
